FAERS Safety Report 5296056-7 (Version None)
Quarter: 2007Q2

REPORT INFORMATION
  Report Type: 
  Country: None (occurrence: None)
  Receive Date: 20070413
  Receipt Date: 20070404
  Transmission Date: 20071010
  Serious: Yes (Life-Threatening)
  Sender: FDA-Public Use
  Company Number: HQWYE694305APR07

PATIENT
  Age: 83 Year
  Sex: Female

DRUGS (7)
  1. AMIODARONE HCL [Suspect]
     Indication: ATRIAL FIBRILLATION
     Dosage: 300 MG ONCE
     Route: 042
     Dates: start: 20070305, end: 20070305
  2. ACETYLSALICYLIC ACID SRT [Concomitant]
     Indication: TRANSIENT ISCHAEMIC ATTACK
     Route: 048
  3. TEMAZEPAM [Concomitant]
     Indication: INSOMNIA
     Route: 048
  4. FUROSEMIDE [Concomitant]
     Indication: LEFT VENTRICULAR FAILURE
     Route: 048
  5. SIMVASTATIN [Concomitant]
     Indication: BLOOD CHOLESTEROL
     Route: 048
  6. CLOPIDOGREL [Concomitant]
     Indication: TRANSIENT ISCHAEMIC ATTACK
     Route: 048
  7. CITALOPRAM HYDROBROMIDE [Concomitant]
     Indication: DEPRESSION
     Route: 048

REACTIONS (2)
  - BLOOD PRESSURE DECREASED [None]
  - CYANOSIS [None]
